FAERS Safety Report 11377598 (Version 1)
Quarter: 2015Q3

REPORT INFORMATION
  Report Type: Spontaneous
  Country: US (occurrence: US)
  Receive Date: 20150811
  Receipt Date: 20150811
  Transmission Date: 20151125
  Serious: No
  Sender: FDA-Public Use
  Company Number: US-ELI_LILLY_AND_COMPANY-US200904002217

PATIENT
  Sex: Female

DRUGS (1)
  1. HUMULIN N [Suspect]
     Active Substance: INSULIN HUMAN

REACTIONS (6)
  - Blood glucose decreased [Unknown]
  - Hyperhidrosis [Unknown]
  - Palpitations [Unknown]
  - Pain in extremity [Unknown]
  - Arthritis [Unknown]
  - Dizziness [Unknown]
